FAERS Safety Report 5102788-3 (Version None)
Quarter: 2006Q3

REPORT INFORMATION
  Report Type: 
  Country: None (occurrence: None)
  Receive Date: 20060907
  Receipt Date: 20060828
  Transmission Date: 20061208
  Serious: Yes (Hospitalization)
  Sender: FDA-Public Use
  Company Number: GXKR2006AU05335

PATIENT
  Age: 34 Year
  Sex: Female

DRUGS (1)
  1. AMOXICILLIN [Suspect]
     Indication: WISDOM TEETH REMOVAL
     Dosage: ORAL
     Route: 048
     Dates: start: 20060801

REACTIONS (3)
  - AMMONIA INCREASED [None]
  - RASH [None]
  - SKIN DISCOLOURATION [None]
